FAERS Safety Report 4277695-9 (Version None)
Quarter: 2004Q1

REPORT INFORMATION
  Report Type: 
  Country: None (occurrence: None)
  Receive Date: 20040121
  Receipt Date: 20040106
  Transmission Date: 20041129
  Serious: Yes (Hospitalization)
  Sender: FDA-Public Use
  Company Number: FR_040103371

PATIENT
  Age: 71 Year
  Sex: Male

DRUGS (1)
  1. PROZAC [Suspect]
     Indication: DYSTHYMIC DISORDER
     Dosage: 20 MG/DAY
     Dates: start: 20031110, end: 20031116

REACTIONS (3)
  - HEADACHE [None]
  - HYPONATRAEMIA [None]
  - MEMORY IMPAIRMENT [None]
